FAERS Safety Report 20987950 (Version 2)
Quarter: 2022Q2

REPORT INFORMATION
  Report Type: Report from Study
  Country: FR (occurrence: FR)
  Receive Date: 20220621
  Receipt Date: 20220623
  Transmission Date: 20220720
  Serious: Yes (Death, Other)
  Sender: FDA-Public Use
  Company Number: FR-GILEAD-2022-0586582

PATIENT
  Sex: Female
  Weight: 55 kg

DRUGS (1)
  1. SACITUZUMAB GOVITECAN [Suspect]
     Active Substance: SACITUZUMAB GOVITECAN
     Indication: Triple negative breast cancer
     Dosage: 10 MG/KG
     Route: 042
     Dates: start: 20220215, end: 20220426

REACTIONS (1)
  - General physical condition abnormal [Fatal]

NARRATIVE: CASE EVENT DATE: 20220526
